FAERS Safety Report 18698122 (Version 4)
Quarter: 2021Q4

REPORT INFORMATION
  Report Type: Report from Study
  Country: KR (occurrence: KR)
  Receive Date: 20210105
  Receipt Date: 20211115
  Transmission Date: 20220303
  Serious: Yes (Hospitalization)
  Sender: FDA-Public Use
  Company Number: KR-BIOGEN-2020BI00962980

PATIENT
  Age: 37 Year
  Sex: Male
  Weight: 72 kg

DRUGS (14)
  1. TECFIDERA [Suspect]
     Active Substance: DIMETHYL FUMARATE
     Indication: Relapsing-remitting multiple sclerosis
     Route: 048
     Dates: start: 20190430, end: 20190506
  2. TECFIDERA [Suspect]
     Active Substance: DIMETHYL FUMARATE
     Route: 048
     Dates: start: 20190507
  3. BEECOM [Concomitant]
     Indication: Prophylaxis
     Route: 048
     Dates: start: 20160404
  4. Bacron [Concomitant]
     Indication: Myelopathy
     Dosage: 3 TABS
     Route: 048
     Dates: start: 20140314, end: 20191227
  5. Bacron [Concomitant]
     Dosage: 3 TABS
     Route: 048
     Dates: start: 20140314, end: 20190927
  6. Lyribear [Concomitant]
     Indication: Myelopathy
     Dosage: 2 TABS
     Route: 048
     Dates: start: 20180808, end: 20190512
  7. Lyribear [Concomitant]
     Route: 048
     Dates: start: 20190513, end: 20190526
  8. Lyribear [Concomitant]
     Route: 048
     Dates: start: 20190527
  9. SILDENAFIL CITRATE [Concomitant]
     Active Substance: SILDENAFIL CITRATE
     Indication: Prophylaxis
     Route: 048
     Dates: start: 20171006
  10. THIAMINE HYDROCHLORIDE [Concomitant]
     Active Substance: THIAMINE HYDROCHLORIDE
     Indication: Diplopia
     Dosage: 50MG/2ML/AMP
     Route: 065
     Dates: start: 20191226, end: 20191228
  11. PREDNISOLONE [Concomitant]
     Active Substance: PREDNISOLONE
     Indication: Multiple sclerosis
     Dosage: 16 TABS
     Route: 048
     Dates: start: 20201222, end: 20201227
  12. PREDNISOLONE [Concomitant]
     Active Substance: PREDNISOLONE
     Dosage: 14 TABS
     Route: 048
     Dates: start: 20201228, end: 20210110
  13. PREDNISOLONE [Concomitant]
     Active Substance: PREDNISOLONE
     Dosage: 12 TABS
     Route: 048
     Dates: start: 20210111, end: 20210124
  14. PREDNISOLONE [Concomitant]
     Active Substance: PREDNISOLONE
     Dosage: 14 TABS
     Route: 048
     Dates: start: 20201222, end: 20210110

REACTIONS (4)
  - Multiple sclerosis [Recovered/Resolved]
  - Blood urea abnormal [Recovered/Resolved]
  - White blood cell disorder [Recovered/Resolved]
  - Alanine aminotransferase abnormal [Recovered/Resolved]

NARRATIVE: CASE EVENT DATE: 20190624
